FAERS Safety Report 7542489-5 (Version None)
Quarter: 2011Q2

REPORT INFORMATION
  Report Type: 
  Country: None (occurrence: None)
  Receive Date: 20110524
  Receipt Date: 20110412
  Transmission Date: 20111010
  Serious: No
  Sender: FDA-Public Use
  Company Number: 015333

PATIENT
  Sex: Male

DRUGS (2)
  1. CIMZIA [Suspect]
     Indication: CROHN'S DISEASE
     Dosage: 2 INJECTIONS EVERY 4 WEEKS SUBCUTANEOUS, ONE CIMZIA INJECTION EVERY TWO WEEK SUBCUTANEOUS
     Route: 058
     Dates: start: 20100101
  2. CIMZIA [Suspect]
     Indication: CROHN'S DISEASE
     Dosage: 2 INJECTIONS EVERY 4 WEEKS SUBCUTANEOUS, ONE CIMZIA INJECTION EVERY TWO WEEK SUBCUTANEOUS
     Route: 058
     Dates: start: 20100507, end: 20100101

REACTIONS (4)
  - HAEMATOCHEZIA [None]
  - FREQUENT BOWEL MOVEMENTS [None]
  - DEFAECATION URGENCY [None]
  - FATIGUE [None]
